FAERS Safety Report 6275582-8 (Version None)
Quarter: 2009Q3

REPORT INFORMATION
  Report Type: 
  Country: None (occurrence: None)
  Receive Date: 20090721
  Receipt Date: 20090714
  Transmission Date: 20100115
  Serious: Yes (Other)
  Sender: FDA-Public Use
  Company Number: US-ABBOTT-09P-163-0585705-00

PATIENT
  Sex: Female

DRUGS (3)
  1. HUMIRA [Suspect]
     Indication: PSORIASIS
     Route: 058
     Dates: start: 20090622, end: 20090701
  2. ALLEGRA [Concomitant]
     Indication: SEASONAL ALLERGY
  3. LEXAPRO [Concomitant]
     Indication: ANXIETY

REACTIONS (2)
  - DIZZINESS [None]
  - ELECTROCARDIOGRAM QT PROLONGED [None]
